FAERS Safety Report 6128507-X (Version None)
Quarter: 2009Q1

REPORT INFORMATION
  Report Type: 
  Country: None (occurrence: None)
  Receive Date: 20090323
  Receipt Date: 20090319
  Transmission Date: 20090719
  Serious: Yes (Hospitalization)
  Sender: FDA-Public Use
  Company Number: DE-ABBOTT-09P-062-0563591-00

PATIENT
  Sex: Male
  Weight: 89.6 kg

DRUGS (4)
  1. ATACAND [Suspect]
     Indication: HYPERTENSION
     Route: 048
     Dates: start: 20080804, end: 20080812
  2. VESDIL [Suspect]
     Indication: HYPERTENSION
     Route: 048
     Dates: end: 20080917
  3. VESDIL [Suspect]
     Route: 048
     Dates: start: 20080925, end: 20081001
  4. ARELIX [Concomitant]
     Indication: HYPERTENSION
     Route: 048

REACTIONS (2)
  - COUGH [None]
  - PHARYNGEAL OEDEMA [None]
